FAERS Safety Report 19418778 (Version 3)
Quarter: 2021Q3

REPORT INFORMATION
  Report Type: Spontaneous
  Country: US (occurrence: US)
  Receive Date: 20210615
  Receipt Date: 20210805
  Transmission Date: 20211014
  Serious: Yes (Other)
  Sender: FDA-Public Use
  Company Number: US-CELGENEUS-USA-20210603575

PATIENT
  Sex: Male
  Weight: 10.44 kg

DRUGS (6)
  1. THALOMID [Suspect]
     Active Substance: THALIDOMIDE
     Indication: OFF LABEL USE
     Dosage: 250 MILLIGRAM
     Route: 048
     Dates: start: 20210514, end: 20210614
  2. THALOMID [Suspect]
     Active Substance: THALIDOMIDE
     Indication: BRAIN NEOPLASM MALIGNANT
     Dosage: 50 MILLIGRAM
     Route: 048
  3. ETOPOSIDE. [Concomitant]
     Active Substance: ETOPOSIDE
     Indication: MEDULLOBLASTOMA RECURRENT
     Dosage: 2.381 MILLIGRAM/MILLILITERS
     Route: 065
     Dates: start: 20210427, end: 20210517
  4. KEPPRA [Concomitant]
     Active Substance: LEVETIRACETAM
     Indication: SEIZURE PROPHYLAXIS
     Dosage: 400 MILLIGRAM
     Route: 065
     Dates: start: 202008
  5. FENOFIBRATE. [Concomitant]
     Active Substance: FENOFIBRATE
     Indication: MEDULLOBLASTOMA RECURRENT
     Route: 065
     Dates: start: 20210427, end: 20210614
  6. CELECOXIB. [Concomitant]
     Active Substance: CELECOXIB
     Indication: MEDULLOBLASTOMA RECURRENT
     Dosage: 200 MILLIGRAM
     Route: 065
     Dates: start: 20210427, end: 20210614

REACTIONS (1)
  - Disease progression [Unknown]
